FAERS Safety Report 24930464 (Version 1)
Quarter: 2025Q1

REPORT INFORMATION
  Report Type: Spontaneous
  Country: US (occurrence: US)
  Receive Date: 20250205
  Receipt Date: 20250205
  Transmission Date: 20250408
  Serious: Yes (Other)
  Sender: ALLIANCE
  Company Number: US-Alliance Pharma Inc.-2170564

PATIENT
  Sex: Male

DRUGS (1)
  1. HOMEOPATHICS [Suspect]
     Active Substance: HOMEOPATHICS
     Indication: Lice infestation

REACTIONS (1)
  - Dyspnoea [Unknown]
